FAERS Safety Report 11991897 (Version 3)
Quarter: 2016Q1

REPORT INFORMATION
  Report Type: Spontaneous
  Country: US (occurrence: US)
  Receive Date: 20160203
  Receipt Date: 20160322
  Transmission Date: 20160526
  Serious: Yes (Hospitalization, Disabling)
  Sender: FDA-Public Use
  Company Number: US-JNJFOC-20160106268

PATIENT
  Age: 65 Year
  Sex: Male

DRUGS (2)
  1. RISPERIDONE. [Concomitant]
     Active Substance: RISPERIDONE
     Indication: PRODUCT USED FOR UNKNOWN INDICATION
     Route: 048
  2. INVEGA TRINZA [Suspect]
     Active Substance: PALIPERIDONE PALMITATE
     Indication: SCHIZOPHRENIA
     Route: 030
     Dates: start: 201508

REACTIONS (8)
  - Confusional state [Unknown]
  - Activities of daily living impaired [Unknown]
  - Akathisia [Unknown]
  - Drug ineffective [Unknown]
  - Pneumonia [Unknown]
  - Dyskinesia [Unknown]
  - Sedation [Unknown]
  - Psychotic disorder [Unknown]

NARRATIVE: CASE EVENT DATE: 201508
